FAERS Safety Report 9584014 (Version 1)
Quarter: 2013Q4

REPORT INFORMATION
  Report Type: Spontaneous
  Country: US (occurrence: US)
  Receive Date: 20131002
  Receipt Date: 20131002
  Transmission Date: 20140711
  Serious: No
  Sender: FDA-Public Use
  Company Number: US-AMGEN-USASP2013051118

PATIENT
  Age: 61 Year
  Sex: Female
  Weight: 74.83 kg

DRUGS (7)
  1. ENBREL [Suspect]
     Indication: PRODUCT USED FOR UNKNOWN INDICATION
     Dosage: 50 MG, 2 TIMES/WK
     Route: 058
     Dates: start: 201210, end: 20130716
  2. FISH OIL [Concomitant]
     Dosage: UNK
  3. MULTIVITAMINS, PLAIN [Concomitant]
     Dosage: UNK
  4. BYSTOLIC [Concomitant]
     Dosage: 5 MG, UNK
  5. LISINOPRIL [Concomitant]
     Dosage: 5 MG, UNK
  6. AMBIEN [Concomitant]
     Dosage: 5 MG, UNK
  7. XANAX [Concomitant]
     Dosage: 2 MG, UNK

REACTIONS (1)
  - Drug effect incomplete [Unknown]
